FAERS Safety Report 9237126 (Version 3)
Quarter: 2013Q2

REPORT INFORMATION
  Report Type: Spontaneous
  Country: US (occurrence: US)
  Receive Date: 20130417
  Receipt Date: 20130612
  Transmission Date: 20140414
  Serious: Yes (Hospitalization)
  Sender: FDA-Public Use
  Company Number: US-GLAXOSMITHKLINE-A1019063A

PATIENT
  Age: 79 Year
  Sex: Male

DRUGS (7)
  1. LAMICTAL XR [Suspect]
     Indication: GRAND MAL CONVULSION
     Dosage: 400MG PER DAY
     Route: 048
     Dates: start: 201210
  2. AMBIEN [Concomitant]
  3. CALCIUM [Concomitant]
  4. FISH OIL [Concomitant]
  5. RED YEAST RICE [Concomitant]
  6. PROPANOLOL [Concomitant]
  7. ALENDRONATE [Concomitant]

REACTIONS (5)
  - Convulsion [Recovered/Resolved]
  - Overdose [Unknown]
  - Tremor [Unknown]
  - Amnesia [Recovered/Resolved]
  - Memory impairment [Recovered/Resolved]
